FAERS Safety Report 24986302 (Version 1)
Quarter: 2025Q1

REPORT INFORMATION
  Report Type: Report from Study
  Country: US (occurrence: US)
  Receive Date: 20250219
  Receipt Date: 20250219
  Transmission Date: 20250409
  Serious: Yes (Other)
  Sender: ABBVIE
  Company Number: US-ABBVIE-6104771

PATIENT
  Age: 53 Year
  Sex: Male

DRUGS (2)
  1. SKYRIZI [Suspect]
     Active Substance: RISANKIZUMAB-RZAA
     Indication: Crohn^s disease
     Route: 058
     Dates: start: 20230703
  2. SKYRIZI [Suspect]
     Active Substance: RISANKIZUMAB-RZAA
     Route: 058
     Dates: start: 20221222

REACTIONS (7)
  - Haematochezia [Unknown]
  - Chills [Unknown]
  - Fatigue [Unknown]
  - Illness [Unknown]
  - Crohn^s disease [Unknown]
  - Pain [Unknown]
  - Arthritis [Unknown]

NARRATIVE: CASE EVENT DATE: 20250101
